FAERS Safety Report 12228713 (Version 4)
Quarter: 2017Q3

REPORT INFORMATION
  Report Type: Spontaneous
  Country: US (occurrence: US)
  Receive Date: 20160401
  Receipt Date: 20170802
  Transmission Date: 20171127
  Serious: Yes (Hospitalization, Other)
  Sender: FDA-Public Use
  Company Number: US-JNJFOC-20160301437

PATIENT
  Age: 64 Year

DRUGS (3)
  1. XARELTO [Suspect]
     Active Substance: RIVAROXABAN
     Indication: ANTICOAGULANT THERAPY
     Route: 048
     Dates: start: 20140805, end: 20150602
  2. XARELTO [Suspect]
     Active Substance: RIVAROXABAN
     Indication: ANTICOAGULANT THERAPY
     Route: 048
     Dates: start: 2015, end: 20150702
  3. XARELTO [Suspect]
     Active Substance: RIVAROXABAN
     Indication: ANTICOAGULANT THERAPY
     Route: 048
     Dates: start: 20140702, end: 2014

REACTIONS (4)
  - Internal haemorrhage [Unknown]
  - Cerebrovascular accident [Unknown]
  - Haematochezia [Unknown]
  - Melaena [Unknown]

NARRATIVE: CASE EVENT DATE: 201507
